FAERS Safety Report 23920105 (Version 1)
Quarter: 2024Q2

REPORT INFORMATION
  Report Type: Spontaneous
  Country: FR (occurrence: FR)
  Receive Date: 20240530
  Receipt Date: 20240530
  Transmission Date: 20240716
  Serious: Yes (Disabling, Other)
  Sender: FDA-Public Use
  Company Number: None

PATIENT
  Age: 60 Year
  Sex: Male
  Weight: 93 kg

DRUGS (6)
  1. BRAFTOVI [Suspect]
     Active Substance: ENCORAFENIB
     Indication: Metastatic malignant melanoma
     Dosage: 1 DF
     Route: 048
     Dates: start: 20230105, end: 2023
  2. BRAFTOVI [Suspect]
     Active Substance: ENCORAFENIB
     Dosage: 1 DF
     Route: 048
     Dates: start: 202308, end: 202311
  3. MEKTOVI [Suspect]
     Active Substance: BINIMETINIB
     Indication: Metastatic malignant melanoma
     Dosage: 1 DF
     Route: 048
     Dates: start: 20230105, end: 2023
  4. MEKTOVI [Suspect]
     Active Substance: BINIMETINIB
     Dosage: 1 DF
     Route: 048
     Dates: start: 202308, end: 202311
  5. ACETAMINOPHEN [Concomitant]
     Active Substance: ACETAMINOPHEN
     Indication: Pain
     Dosage: 1 DF
     Route: 048
  6. NICARDIPINE HYDROCHLORIDE [Concomitant]
     Active Substance: NICARDIPINE HYDROCHLORIDE
     Indication: Hypertension
     Dosage: 50 MG, BID (2/DAY)
     Route: 048

REACTIONS (1)
  - Necrotising myositis [Not Recovered/Not Resolved]

NARRATIVE: CASE EVENT DATE: 20230901
